FAERS Safety Report 4371161-8 (Version None)
Quarter: 2004Q2

REPORT INFORMATION
  Report Type: 
  Country: None (occurrence: None)
  Receive Date: 20040601
  Receipt Date: 20040519
  Transmission Date: 20050107
  Serious: Yes (Life-Threatening, Hospitalization)
  Sender: FDA-Public Use
  Company Number: US-JNJFOC-20040504555

PATIENT
  Age: 70 Year
  Sex: Female
  Weight: 81.6475 kg

DRUGS (6)
  1. REMICADE [Suspect]
     Indication: RHEUMATOID ARTHRITIS
     Dosage: INTRAVENOUS
     Route: 042
     Dates: start: 20030901
  2. REMICADE [Suspect]
     Indication: RHEUMATOID ARTHRITIS
     Dosage: INTRAVENOUS
     Route: 042
     Dates: start: 20040401
  3. LEVOXIL (LEVOTHYROXINE SODIUM) [Concomitant]
  4. ASPIRIN [Concomitant]
  5. BEXTRA [Concomitant]
  6. VITAMINS (VITAMINS) [Concomitant]

REACTIONS (9)
  - ASTHENIA [None]
  - BLOOD PRESSURE DECREASED [None]
  - CYSTITIS [None]
  - DIZZINESS [None]
  - DYSPNOEA [None]
  - OXYGEN SATURATION DECREASED [None]
  - PLATELET COUNT DECREASED [None]
  - SUBDURAL HAEMORRHAGE [None]
  - WHITE BLOOD CELL COUNT DECREASED [None]
